FAERS Safety Report 4558045-7 (Version None)
Quarter: 2005Q1

REPORT INFORMATION
  Report Type: 
  Country: None (occurrence: None)
  Receive Date: 20050121
  Receipt Date: 20040708
  Transmission Date: 20050727
  Serious: No
  Sender: FDA-Public Use
  Company Number: US-BRISTOL-MYERS SQUIBB COMPANY-12639845

PATIENT
  Age: 55 Year
  Sex: Female

DRUGS (7)
  1. SERZONE [Suspect]
     Route: 048
     Dates: start: 19991006, end: 20020202
  2. ZOCOR [Concomitant]
  3. MONOPRIL [Concomitant]
  4. AMITRIPTYLINE [Concomitant]
  5. ACIPHEX [Concomitant]
  6. VIOXX [Concomitant]
  7. GLUCOTROL [Concomitant]

REACTIONS (4)
  - ABDOMINAL PAIN [None]
  - FATIGUE [None]
  - HEPATOMEGALY [None]
  - NAUSEA [None]
